FAERS Safety Report 7944968-5 (Version None)
Quarter: 2011Q4

REPORT INFORMATION
  Report Type: 
  Country: None (occurrence: None)
  Receive Date: 20111129
  Receipt Date: 20111122
  Transmission Date: 20120403
  Serious: No
  Sender: FDA-Public Use
  Company Number: US-BAYER-2011-114003

PATIENT
  Sex: Female

DRUGS (3)
  1. ALEVE (CAPLET) [Suspect]
     Dosage: 440 MG, ONCE
     Route: 048
     Dates: start: 20111121
  2. ALEVE (CAPLET) [Suspect]
     Indication: HEADACHE
     Dosage: 220 MG, ONCE
     Route: 048
     Dates: start: 20111120, end: 20111120
  3. TYLENOL (CAPLET) [Concomitant]
     Indication: HEADACHE
     Dosage: 2 DF, QD
     Route: 048
     Dates: start: 20111118, end: 20111119

REACTIONS (1)
  - HEADACHE [None]
